FAERS Safety Report 20339150 (Version 1)
Quarter: 2022Q1

REPORT INFORMATION
  Report Type: Spontaneous
  Country: DE (occurrence: DE)
  Receive Date: 20220117
  Receipt Date: 20220117
  Transmission Date: 20220423
  Serious: Yes (Other)
  Sender: FDA-Public Use
  Company Number: DE-SUN PHARMACEUTICAL INDUSTRIES LTD-2022RR-323757

PATIENT
  Age: 53 Year
  Sex: Female
  Weight: 76 kg

DRUGS (1)
  1. EZETIMIBE [Suspect]
     Active Substance: EZETIMIBE
     Indication: Hypercholesterolaemia
     Dosage: 10 MILLIGRAM, DAILY
     Route: 048
     Dates: start: 202111, end: 202112

REACTIONS (1)
  - Sjogren^s syndrome [Recovered/Resolved]
